FAERS Safety Report 11047630 (Version 1)
Quarter: 2015Q2

REPORT INFORMATION
  Report Type: Spontaneous
  Country: US (occurrence: US)
  Receive Date: 20150420
  Receipt Date: 20150420
  Transmission Date: 20150821
  Serious: No
  Sender: FDA-Public Use
  Company Number: US-PFIZER INC-2015132644

PATIENT
  Age: 32 Year
  Sex: Female

DRUGS (1)
  1. XELJANZ [Suspect]
     Active Substance: TOFACITINIB CITRATE
     Dosage: 5 MG, 2X/DAY

REACTIONS (6)
  - Menstrual disorder [Unknown]
  - Fatigue [Unknown]
  - Arthropathy [Recovering/Resolving]
  - Scar [Unknown]
  - Accident [Recovered/Resolved with Sequelae]
  - Arthritis [Recovering/Resolving]
